FAERS Safety Report 23965960 (Version 1)
Quarter: 2024Q2

REPORT INFORMATION
  Report Type: Other
  Country: CN (occurrence: CN)
  Receive Date: 20240612
  Receipt Date: 20240612
  Transmission Date: 20240716
  Serious: Yes (Hospitalization, Other)
  Sender: FDA-Public Use
  Company Number: CN-QILU PHARMACEUTICAL (HAINAN) CO.  LTD.-QLH-000103-2024

PATIENT
  Age: 57 Year
  Sex: Male
  Weight: 50 kg

DRUGS (10)
  1. OXALIPLATIN [Suspect]
     Active Substance: OXALIPLATIN
     Indication: Diffuse large B-cell lymphoma
     Dosage: 175 MG ONCE DAILY
     Route: 042
     Dates: start: 20240329, end: 20240329
  2. GEMCITABINE HYDROCHLORIDE [Suspect]
     Active Substance: GEMCITABINE HYDROCHLORIDE
     Indication: Diffuse large B-cell lymphoma
     Dosage: 1.750 G ONCE DAILY
     Route: 041
     Dates: start: 20240329, end: 20240329
  3. RITUXIMAB [Concomitant]
     Active Substance: RITUXIMAB
     Indication: Diffuse large B-cell lymphoma
     Dosage: 168 MG ONCE DAILY
     Route: 041
     Dates: start: 20240328, end: 20240328
  4. RITUXIMAB [Concomitant]
     Active Substance: RITUXIMAB
     Dosage: 500 MG ONCE DAILY
     Route: 041
     Dates: start: 20240328, end: 20240328
  5. DEXAMETHASONE SODIUM PHOSPHATE [Concomitant]
     Active Substance: DEXAMETHASONE PHOSPHATE\DEXAMETHASONE SODIUM PHOSPHATE
     Indication: Diffuse large B-cell lymphoma
     Dosage: 10 MG ONCE DAILY
     Route: 041
     Dates: start: 20240328, end: 20240328
  6. SODIUM CHLORIDE [Concomitant]
     Active Substance: SODIUM CHLORIDE
     Indication: Product used for unknown indication
     Dosage: 100 ML ONCE DAILY
     Route: 042
     Dates: start: 20240328, end: 20240328
  7. SODIUM CHLORIDE [Concomitant]
     Active Substance: SODIUM CHLORIDE
     Dosage: 100 ML ONCE DAILY
     Route: 041
     Dates: start: 20240328, end: 20240328
  8. SODIUM CHLORIDE [Concomitant]
     Active Substance: SODIUM CHLORIDE
     Dosage: 500 ML ONCE DAILY
     Route: 042
     Dates: start: 20240328, end: 20240328
  9. SODIUM CHLORIDE [Concomitant]
     Active Substance: SODIUM CHLORIDE
     Dosage: 100 ML ONCE DAILY
     Route: 041
     Dates: start: 20240329, end: 20240329
  10. DEXTROSE [Concomitant]
     Active Substance: DEXTROSE\DEXTROSE MONOHYDRATE
     Indication: Product used for unknown indication
     Dosage: 500 ML ONCE DAILY
     Route: 042
     Dates: start: 20240329, end: 20240329

REACTIONS (3)
  - Gastrointestinal perforation [Recovering/Resolving]
  - Myelosuppression [Recovering/Resolving]
  - Product use in unapproved indication [Recovered/Resolved]

NARRATIVE: CASE EVENT DATE: 20240329
